FAERS Safety Report 4264077-9 (Version None)
Quarter: 2004Q1

REPORT INFORMATION
  Report Type: 
  Country: None (occurrence: None)
  Receive Date: 20040105
  Receipt Date: 20031216
  Transmission Date: 20041129
  Serious: Yes (Death, Hospitalization)
  Sender: FDA-Public Use
  Company Number: 188738

PATIENT
  Sex: Female
  Weight: 81.6475 kg

DRUGS (2)
  1. AVONEX [Suspect]
     Indication: MULTIPLE SCLEROSIS
     Dates: start: 19981012
  2. GLUCOPHAGE ^UNS^ [Concomitant]

REACTIONS (2)
  - DIABETES MELLITUS [None]
  - MULTIPLE SCLEROSIS [None]
